FAERS Safety Report 11312816 (Version 1)
Quarter: 2015Q3

REPORT INFORMATION
  Report Type: Spontaneous
  Country: US (occurrence: US)
  Receive Date: 20150727
  Receipt Date: 20150727
  Transmission Date: 20151125
  Serious: No
  Sender: FDA-Public Use
  Company Number: US-ABBVIE-15P-163-1397042-00

PATIENT
  Sex: Female

DRUGS (2)
  1. SYNTHROID [Suspect]
     Active Substance: LEVOTHYROXINE SODIUM
     Indication: HYPERTHYROIDISM
  2. SYNTHROID [Suspect]
     Active Substance: LEVOTHYROXINE SODIUM
     Indication: HYPOTHYROIDISM
     Dosage: UNKNOWN DOSE AND FREQUENCY
     Route: 048

REACTIONS (11)
  - Anxiety [Not Recovered/Not Resolved]
  - Panic attack [Unknown]
  - Headache [Unknown]
  - Feeling abnormal [Unknown]
  - Nausea [Unknown]
  - Fatigue [Unknown]
  - Hyperthyroidism [Unknown]
  - Hypersomnia [Unknown]
  - Weight increased [Unknown]
  - Migraine [Unknown]
  - Pain [Unknown]
